FAERS Safety Report 10616380 (Version 1)
Quarter: 2014Q4

REPORT INFORMATION
  Report Type: Spontaneous
  Country: DE (occurrence: DE)
  Receive Date: 20141201
  Receipt Date: 20141201
  Transmission Date: 20150529
  Serious: Yes (Other)
  Sender: FDA-Public Use
  Company Number: DE-ELI_LILLY_AND_COMPANY-DE201411006318

PATIENT
  Age: 64 Year
  Sex: Female

DRUGS (14)
  1. ZYPREXA [Suspect]
     Active Substance: OLANZAPINE
     Indication: PRODUCT USED FOR UNKNOWN INDICATION
     Dosage: 20 MG, QD
     Route: 048
     Dates: start: 20121001, end: 20140523
  2. ERGENYL [Suspect]
     Active Substance: VALPROIC ACID
     Dosage: 750 MG, QD
     Route: 048
     Dates: start: 20140713, end: 20140714
  3. ZYPREXA [Suspect]
     Active Substance: OLANZAPINE
     Dosage: 2.5 MG, QD
     Route: 048
     Dates: start: 20140528, end: 20140905
  4. DIPIPERON [Concomitant]
     Active Substance: PIPAMPERONE
     Indication: SLEEP DISORDER
     Dosage: UNK, UNKNOWN
     Route: 065
  5. ERGENYL [Suspect]
     Active Substance: VALPROIC ACID
     Dosage: 300 MG, QD
     Route: 048
     Dates: start: 20140729, end: 20140729
  6. ZYPREXA [Suspect]
     Active Substance: OLANZAPINE
     Dosage: 5 MG, QD
     Route: 048
     Dates: start: 20140526, end: 20140527
  7. ERGENYL [Suspect]
     Active Substance: VALPROIC ACID
     Dosage: 600 MG, QD
     Route: 048
     Dates: start: 20140715, end: 20140716
  8. SERTRALINE [Concomitant]
     Active Substance: SERTRALINE HYDROCHLORIDE
     Indication: DEPRESSION
     Dosage: UNK, UNKNOWN
     Route: 065
  9. ERGENYL [Suspect]
     Active Substance: VALPROIC ACID
     Indication: AFFECTIVE DISORDER
     Dosage: 1050 MG, QD
     Route: 048
     Dates: start: 20121001, end: 20140525
  10. ERGENYL [Suspect]
     Active Substance: VALPROIC ACID
     Dosage: 300 MG, QD
     Route: 048
     Dates: start: 20140727, end: 20140728
  11. ZYPREXA [Suspect]
     Active Substance: OLANZAPINE
     Dosage: 10 MG, QD
     Route: 048
     Dates: start: 20140524, end: 20140525
  12. ERGENYL [Suspect]
     Active Substance: VALPROIC ACID
     Dosage: 750 MG, QD
     Route: 048
     Dates: start: 20140526, end: 20140606
  13. ERGENYL [Suspect]
     Active Substance: VALPROIC ACID
     Dosage: 900 MG, QD
     Route: 048
     Dates: start: 20140606, end: 20140713
  14. ERGENYL [Suspect]
     Active Substance: VALPROIC ACID
     Dosage: 450 MG, QD
     Route: 048
     Dates: start: 20140717, end: 20140726

REACTIONS (5)
  - Amimia [Recovered/Resolved]
  - Tremor [Unknown]
  - Akathisia [Recovering/Resolving]
  - Cerebellar syndrome [Recovered/Resolved]
  - Musculoskeletal stiffness [Recovered/Resolved]

NARRATIVE: CASE EVENT DATE: 20121015
